FAERS Safety Report 13678150 (Version 1)
Quarter: 2017Q2

REPORT INFORMATION
  Report Type: Spontaneous
  Country: US (occurrence: US)
  Receive Date: 20170621
  Receipt Date: 20170621
  Transmission Date: 20170830
  Serious: Yes (Hospitalization)
  Sender: FDA-Public Use
  Company Number: None

PATIENT
  Age: 89 Year
  Sex: Male

DRUGS (2)
  1. NAPROXEN. [Suspect]
     Active Substance: NAPROXEN
     Route: 048
     Dates: start: 20170614, end: 20170614
  2. APIXABAN [Suspect]
     Active Substance: APIXABAN
     Indication: ATRIAL FIBRILLATION
     Route: 048
     Dates: start: 20140319, end: 20170617

REACTIONS (4)
  - Gastritis erosive [None]
  - Upper gastrointestinal haemorrhage [None]
  - Gastric ulcer [None]
  - Haemoglobin decreased [None]

NARRATIVE: CASE EVENT DATE: 20170617
